FAERS Safety Report 22146845 (Version 1)
Quarter: 2023Q1

REPORT INFORMATION
  Report Type: Spontaneous
  Country: GB (occurrence: GB)
  Receive Date: 20230328
  Receipt Date: 20230328
  Transmission Date: 20230418
  Serious: Yes (Death, Life-Threatening, Hospitalization, Other)
  Sender: FDA-Public Use
  Company Number: GB-AMGEN-GBRSP2023050968

PATIENT

DRUGS (50)
  1. ADALIMUMAB [Suspect]
     Active Substance: ADALIMUMAB
     Indication: Psoriatic arthropathy
     Dosage: UNK
     Route: 065
  2. ADALIMUMAB [Suspect]
     Active Substance: ADALIMUMAB
     Indication: Psoriasis
  3. LEFLUNOMIDE [Concomitant]
     Active Substance: LEFLUNOMIDE
     Indication: Psoriatic arthropathy
     Dosage: UNK
     Route: 065
  4. LEFLUNOMIDE [Concomitant]
     Active Substance: LEFLUNOMIDE
     Indication: Psoriasis
  5. METHOTREXATE [Concomitant]
     Active Substance: METHOTREXATE
     Indication: Psoriatic arthropathy
     Dosage: UNK
     Route: 065
  6. METHOTREXATE [Concomitant]
     Active Substance: METHOTREXATE
     Indication: Psoriasis
  7. MYCOPHENOLATE MOFETIL [Concomitant]
     Active Substance: MYCOPHENOLATE MOFETIL
     Indication: Psoriatic arthropathy
     Dosage: UNK
     Route: 065
  8. MYCOPHENOLATE MOFETIL [Concomitant]
     Active Substance: MYCOPHENOLATE MOFETIL
     Indication: Psoriasis
  9. CYCLOSPORINE [Concomitant]
     Active Substance: CYCLOSPORINE
     Indication: Psoriatic arthropathy
     Dosage: UNK
     Route: 065
  10. CYCLOSPORINE [Concomitant]
     Active Substance: CYCLOSPORINE
     Indication: Psoriasis
  11. SULFASALAZINE [Concomitant]
     Active Substance: SULFASALAZINE
     Indication: Psoriatic arthropathy
     Dosage: UNK
     Route: 065
  12. SULFASALAZINE [Concomitant]
     Active Substance: SULFASALAZINE
     Indication: Psoriasis
  13. MERCAPTOPURINE [Concomitant]
     Active Substance: MERCAPTOPURINE
     Indication: Psoriatic arthropathy
     Route: 065
  14. MERCAPTOPURINE [Concomitant]
     Active Substance: MERCAPTOPURINE
     Indication: Psoriasis
  15. THIOGUANINE [Concomitant]
     Active Substance: THIOGUANINE
     Indication: Psoriatic arthropathy
     Dosage: UNK
     Route: 065
  16. THIOGUANINE [Concomitant]
     Active Substance: THIOGUANINE
     Indication: Psoriasis
  17. AZATHIOPRINE [Concomitant]
     Active Substance: AZATHIOPRINE
     Indication: Psoriatic arthropathy
     Dosage: UNK
     Route: 065
  18. AZATHIOPRINE [Concomitant]
     Active Substance: AZATHIOPRINE
     Indication: Psoriasis
  19. ETANERCEPT [Concomitant]
     Active Substance: ETANERCEPT
     Indication: Psoriatic arthropathy
     Dosage: UNK
     Route: 065
  20. ETANERCEPT [Concomitant]
     Active Substance: ETANERCEPT
     Indication: Psoriasis
  21. GOLIMUMAB [Concomitant]
     Active Substance: GOLIMUMAB
     Indication: Psoriatic arthropathy
     Dosage: UNK
     Route: 065
  22. GOLIMUMAB [Concomitant]
     Active Substance: GOLIMUMAB
     Indication: Psoriasis
  23. CERTOLIZUMAB PEGOL [Concomitant]
     Active Substance: CERTOLIZUMAB PEGOL
     Indication: Psoriatic arthropathy
     Dosage: UNK
     Route: 065
  24. CERTOLIZUMAB PEGOL [Concomitant]
     Active Substance: CERTOLIZUMAB PEGOL
     Indication: Psoriasis
  25. INFLIXIMAB [Concomitant]
     Active Substance: INFLIXIMAB
     Indication: Psoriatic arthropathy
     Dosage: UNK
     Route: 065
  26. INFLIXIMAB [Concomitant]
     Active Substance: INFLIXIMAB
     Indication: Psoriasis
  27. SECUKINUMAB [Concomitant]
     Active Substance: SECUKINUMAB
     Indication: Psoriatic arthropathy
     Dosage: UNK
     Route: 065
  28. SECUKINUMAB [Concomitant]
     Active Substance: SECUKINUMAB
     Indication: Psoriasis
  29. IXEKIZUMAB [Concomitant]
     Active Substance: IXEKIZUMAB
     Indication: Psoriatic arthropathy
     Dosage: UNK
     Route: 065
  30. IXEKIZUMAB [Concomitant]
     Active Substance: IXEKIZUMAB
     Indication: Psoriasis
  31. BRODALUMAB [Concomitant]
     Active Substance: BRODALUMAB
     Indication: Psoriatic arthropathy
     Dosage: UNK
     Route: 065
  32. BRODALUMAB [Concomitant]
     Active Substance: BRODALUMAB
     Indication: Psoriasis
  33. USTEKINUMAB [Concomitant]
     Active Substance: USTEKINUMAB
     Indication: Psoriatic arthropathy
     Dosage: UNK
     Route: 065
  34. USTEKINUMAB [Concomitant]
     Active Substance: USTEKINUMAB
     Indication: Psoriasis
  35. GUSELKUMAB [Concomitant]
     Active Substance: GUSELKUMAB
     Indication: Psoriatic arthropathy
     Dosage: UNK
     Route: 065
  36. GUSELKUMAB [Concomitant]
     Active Substance: GUSELKUMAB
     Indication: Psoriasis
  37. RISANKIZUMAB [Concomitant]
     Active Substance: RISANKIZUMAB
     Indication: Psoriatic arthropathy
     Dosage: UNK
     Route: 065
  38. RISANKIZUMAB [Concomitant]
     Active Substance: RISANKIZUMAB
     Indication: Psoriasis
  39. TILDRAKIZUMAB [Concomitant]
     Active Substance: TILDRAKIZUMAB
     Indication: Psoriatic arthropathy
     Dosage: UNK
     Route: 065
  40. TILDRAKIZUMAB [Concomitant]
     Active Substance: TILDRAKIZUMAB
     Indication: Psoriasis
  41. TOCILIZUMAB [Concomitant]
     Active Substance: TOCILIZUMAB
     Indication: Psoriatic arthropathy
     Dosage: UNK
     Route: 065
  42. TOCILIZUMAB [Concomitant]
     Active Substance: TOCILIZUMAB
     Indication: Psoriasis
  43. SARILUMAB [Concomitant]
     Active Substance: SARILUMAB
     Indication: Psoriatic arthropathy
     Dosage: UNK
     Route: 065
  44. SARILUMAB [Concomitant]
     Active Substance: SARILUMAB
     Indication: Psoriasis
  45. RITUXIMAB [Concomitant]
     Active Substance: RITUXIMAB
     Indication: Psoriatic arthropathy
     Dosage: UNK
     Route: 065
  46. RITUXIMAB [Concomitant]
     Active Substance: RITUXIMAB
     Indication: Psoriasis
  47. BARICITINIB [Concomitant]
     Active Substance: BARICITINIB
     Indication: Psoriatic arthropathy
     Dosage: UNK
     Route: 065
  48. BARICITINIB [Concomitant]
     Active Substance: BARICITINIB
     Indication: Psoriasis
  49. TOFACITINIB [Concomitant]
     Active Substance: TOFACITINIB
     Indication: Psoriatic arthropathy
     Dosage: UNK
     Route: 065
  50. TOFACITINIB [Concomitant]
     Active Substance: TOFACITINIB
     Indication: Psoriasis

REACTIONS (1)
  - COVID-19 [Fatal]
